FAERS Safety Report 6278652-3 (Version None)
Quarter: 2009Q3

REPORT INFORMATION
  Report Type: 
  Country: None (occurrence: None)
  Receive Date: 20090722
  Receipt Date: 20090527
  Transmission Date: 20100115
  Serious: No
  Sender: FDA-Public Use
  Company Number: US-BAUSCH-2009BL002616

PATIENT
  Age: 80 Year
  Sex: Female

DRUGS (4)
  1. OPCON-A [Suspect]
     Indication: DRY EYE
     Route: 047
     Dates: start: 20090515, end: 20090517
  2. ADVANCED EYE RELIEF/DRY EYE/REJUVENATION LUBRICANT EYE DROPS [Suspect]
     Indication: DRY EYE
     Route: 047
     Dates: start: 20090515
  3. SOOTHE XP [Suspect]
     Indication: DRY EYE
     Route: 047
     Dates: start: 20090515
  4. XALATAN                                 /SWE/ [Concomitant]

REACTIONS (1)
  - DRUG INEFFECTIVE [None]
